FAERS Safety Report 11935519 (Version 2)
Quarter: 2016Q1

REPORT INFORMATION
  Report Type: Spontaneous
  Country: US (occurrence: US)
  Receive Date: 20160121
  Receipt Date: 20160125
  Transmission Date: 20160526
  Serious: No
  Sender: FDA-Public Use
  Company Number: US-PFIZER INC-2016021889

PATIENT
  Age: 58 Year
  Sex: Female
  Weight: 104 kg

DRUGS (22)
  1. DDAVP [Concomitant]
     Active Substance: DESMOPRESSIN ACETATE
     Dosage: 1 DF, 1X/DAY (AT NIGHT)
     Route: 048
  2. ATORVASTATIN CALCIUM. [Concomitant]
     Active Substance: ATORVASTATIN CALCIUM
     Indication: BLOOD CHOLESTEROL INCREASED
     Dosage: 80 MG, 1X/DAY
     Route: 048
  3. RISPERDAL [Concomitant]
     Active Substance: RISPERIDONE
     Dosage: UNK UNK, 1X/DAY (AT NIGHT)
  4. NEURONTIN [Concomitant]
     Active Substance: GABAPENTIN
     Dosage: UNK
  5. LYRICA [Suspect]
     Active Substance: PREGABALIN
     Indication: FIBROMYALGIA
  6. LOSARTAN POTASSIUM. [Concomitant]
     Active Substance: LOSARTAN POTASSIUM
     Indication: HYPERTENSION
     Dosage: 50 MG, 1X/DAY
     Route: 048
  7. CYMBALTA [Concomitant]
     Active Substance: DULOXETINE HYDROCHLORIDE
     Dosage: 60 MG, 1X/DAY
     Route: 048
  8. BABY ASPIRIN [Concomitant]
     Active Substance: ASPIRIN
     Indication: CARDIAC DISORDER
     Dosage: 81 MG, UNK
  9. TRAZODONE [Concomitant]
     Active Substance: TRAZODONE HYDROCHLORIDE
     Indication: INSOMNIA
     Dosage: 200 MG, UNK (AT NIGHT)
     Route: 048
  10. FLONASE [Concomitant]
     Active Substance: FLUTICASONE PROPIONATE
     Indication: DYSPNOEA
     Dosage: 100 UG, DAILY (50MCG 2 SPRAYS DAILY)
  11. CALCIUM [Concomitant]
     Active Substance: CALCIUM
     Indication: OSTEOPOROSIS
     Dosage: 600 MG, 1X/DAY
     Route: 048
  12. KLONOPIN [Concomitant]
     Active Substance: CLONAZEPAM
     Indication: NERVE INJURY
     Dosage: 2 MG, 3X/DAY
     Route: 048
  13. POTASSIUM [Concomitant]
     Active Substance: POTASSIUM
     Indication: ELECTROLYTE SUBSTITUTION THERAPY
     Dosage: 1 DF, 2X/DAY (IN THE MORNING AND AT NOON)
  14. LYRICA [Suspect]
     Active Substance: PREGABALIN
     Indication: DIABETIC NEPHROPATHY
     Dosage: 50 MG, 3X/DAY
     Route: 048
  15. METFORMIN HCL [Suspect]
     Active Substance: METFORMIN HYDROCHLORIDE
     Indication: DIABETES MELLITUS
     Dosage: 1000 MG, 2X/DAY
     Route: 048
  16. OXYGEN. [Concomitant]
     Active Substance: OXYGEN
     Indication: INTERSTITIAL LUNG DISEASE
     Dosage: 2.5 L, UNK (ALL NIGHT)
  17. LAMICTAL [Concomitant]
     Active Substance: LAMOTRIGINE
     Dosage: 300 MG, UNK (ONE IN THE MORNING AND 2 TABLETS AT NIGHT)
  18. LOTREL [Concomitant]
     Active Substance: AMLODIPINE BESYLATE\BENAZEPRIL HYDROCHLORIDE
     Indication: HYPERTENSION
     Dosage: 1 DF, 1X/DAY (AMLODIPINE BESILATE: 10, BENAZEPRIL HYDROCHLORIDE: 40)
     Route: 048
  19. PROTONIX [Concomitant]
     Active Substance: PANTOPRAZOLE SODIUM
     Indication: GASTROOESOPHAGEAL REFLUX DISEASE
     Dosage: 40 MG, 1X/DAY
     Route: 048
  20. VITAMIN D [Concomitant]
     Active Substance: CHOLECALCIFEROL
     Dosage: 2000 IU, 1X/DAY
     Route: 048
  21. COZAAR [Concomitant]
     Active Substance: LOSARTAN POTASSIUM
     Indication: HYPERTENSION
     Dosage: 100 MG, 1X/DAY
     Route: 048
  22. ZETIA [Concomitant]
     Active Substance: EZETIMIBE
     Indication: BLOOD CHOLESTEROL INCREASED
     Dosage: UNK

REACTIONS (3)
  - Condition aggravated [Not Recovered/Not Resolved]
  - Insomnia [Not Recovered/Not Resolved]
  - Vision blurred [Not Recovered/Not Resolved]
